FAERS Safety Report 17298802 (Version 1)
Quarter: 2020Q1

REPORT INFORMATION
  Report Type: Spontaneous
  Country: US (occurrence: US)
  Receive Date: 20200121
  Receipt Date: 20200121
  Transmission Date: 20200409
  Serious: No
  Sender: FDA-Public Use
  Company Number: None

PATIENT
  Age: 31 Year
  Sex: Male
  Weight: 90 kg

DRUGS (6)
  1. COLD MULTI SYMPTOM (ACETAMINOPHEN\DEXTROMETHORPHAN HBR\PHENYLEPHRINE HCL) [Suspect]
     Active Substance: ACETAMINOPHEN\DEXTROMETHORPHAN HYDROBROMIDE\PHENYLEPHRINE HYDROCHLORIDE
     Indication: INFLUENZA
     Dates: start: 20200114, end: 20200114
  2. WELLBUTRIN XL [Concomitant]
     Active Substance: BUPROPION HYDROCHLORIDE
  3. VITAMIN D [Concomitant]
     Active Substance: VITAMIN D NOS
  4. MULTIVITAMIN ALL NATURE MADE [Concomitant]
  5. SYNTHROID [Concomitant]
     Active Substance: LEVOTHYROXINE SODIUM
  6. FISH OIL [Concomitant]
     Active Substance: FISH OIL

REACTIONS (2)
  - Cardiovascular disorder [None]
  - Feeling cold [None]

NARRATIVE: CASE EVENT DATE: 20200114
